FAERS Safety Report 5899608-6 (Version None)
Quarter: 2008Q3

REPORT INFORMATION
  Report Type: 
  Country: None (occurrence: None)
  Receive Date: 20080926
  Receipt Date: 20080922
  Transmission Date: 20090109
  Serious: Yes (Life-Threatening)
  Sender: FDA-Public Use
  Company Number: PHHY2008DE21982

PATIENT

DRUGS (1)
  1. EXJADE [Suspect]

REACTIONS (1)
  - MYOCARDIAL INFARCTION [None]
